FAERS Safety Report 9214901 (Version 2)
Quarter: 2013Q4

REPORT INFORMATION
  Report Type: Spontaneous
  Country: US (occurrence: US)
  Receive Date: 20130405
  Receipt Date: 20131204
  Transmission Date: 20140711
  Serious: Yes (Hospitalization)
  Sender: FDA-Public Use
  Company Number: US-BAYER-2013-041250

PATIENT
  Age: 39 Year
  Sex: Female

DRUGS (9)
  1. YAZ [Suspect]
     Dosage: UNK
     Dates: start: 200710, end: 200906
  2. SINGULAIR [Concomitant]
     Dosage: 10 MG, UNK
  3. AZITHROMYCIN [Concomitant]
     Dosage: 250 MG, UNK
  4. XYZAL [Concomitant]
  5. LEVOTHYROXINE [Concomitant]
  6. ADVAIR [Concomitant]
  7. PROAIR HFA [Concomitant]
  8. RELPAX [Concomitant]
  9. MULTIVITAMIN [Concomitant]

REACTIONS (5)
  - Gallbladder disorder [None]
  - Cholecystitis acute [None]
  - Pain [None]
  - Injury [None]
  - Pain [None]
